FAERS Safety Report 6026970-6 (Version None)
Quarter: 2009Q1

REPORT INFORMATION
  Report Type: 
  Country: None (occurrence: None)
  Receive Date: 20090105
  Receipt Date: 20081226
  Transmission Date: 20090719
  Serious: Yes (Other)
  Sender: FDA-Public Use
  Company Number: PHHY2008JP33340

PATIENT
  Sex: Female
  Weight: 46 kg

DRUGS (8)
  1. GLEEVEC [Suspect]
     Indication: GASTROINTESTINAL CARCINOMA
     Dosage: 400MG/DAY
     Route: 048
     Dates: start: 20031222, end: 20040810
  2. GLEEVEC [Suspect]
     Indication: GASTROINTESTINAL STROMAL TUMOUR
     Dosage: 400MG/DAY
     Route: 048
     Dates: start: 20050520, end: 20051115
  3. GLEEVEC [Suspect]
     Dosage: 400MG/DAY
     Route: 048
     Dates: start: 20060119, end: 20060307
  4. GLEEVEC [Suspect]
     Dosage: 400MG/DAY
     Route: 048
     Dates: start: 20060101, end: 20060619
  5. GLEEVEC [Suspect]
     Dosage: 400MG/DAY
     Route: 048
     Dates: start: 20060706, end: 20060719
  6. GLEEVEC [Suspect]
     Dosage: 300MG/DAY
     Route: 048
     Dates: start: 20060720, end: 20060724
  7. GLEEVEC [Suspect]
     Dosage: 300MG/DAY
     Route: 048
     Dates: start: 20070213, end: 20070725
  8. GLEEVEC [Suspect]
     Dosage: 300MG/DAY
     Route: 048
     Dates: start: 20070925

REACTIONS (3)
  - ABDOMINAL PAIN [None]
  - BILIARY FISTULA [None]
  - PYREXIA [None]
